FAERS Safety Report 4772059-3 (Version None)
Quarter: 2005Q3

REPORT INFORMATION
  Report Type: 
  Country: None (occurrence: None)
  Receive Date: 20050918
  Receipt Date: 20050311
  Transmission Date: 20060218
  Serious: Yes (Death, Hospitalization, Disabling)
  Sender: FDA-Public Use
  Company Number: US-MERCK-0503USA02648

PATIENT
  Age: 71 Year
  Sex: Female
  Weight: 82 kg

DRUGS (7)
  1. VIOXX [Suspect]
     Indication: ARTHRITIS
     Route: 048
     Dates: start: 20000106, end: 20020701
  2. CHONDROITIN SULFATE SODIUM AND GLUCOSAMINE HYDROCHLORIDE [Concomitant]
     Route: 065
     Dates: start: 20000101, end: 20020702
  3. DIAZEPAM [Concomitant]
     Route: 065
  4. BACLOFEN [Concomitant]
     Route: 065
  5. FUROSEMIDE [Concomitant]
     Route: 065
     Dates: end: 20020702
  6. MACROBID [Concomitant]
     Route: 065
  7. VITAMINS (UNSPECIFIED) [Concomitant]
     Route: 065

REACTIONS (8)
  - ATHEROSCLEROSIS [None]
  - CEREBROVASCULAR ACCIDENT [None]
  - DEPRESSION [None]
  - EMBOLIC STROKE [None]
  - HYPERTENSION [None]
  - HYPOTHYROIDISM [None]
  - TRANSIENT ISCHAEMIC ATTACK [None]
  - ULCER [None]
